FAERS Safety Report 10407117 (Version 8)
Quarter: 2015Q4

REPORT INFORMATION
  Report Type: Spontaneous
  Country: US (occurrence: US)
  Receive Date: 20140825
  Receipt Date: 20151223
  Transmission Date: 20160304
  Serious: Yes (Hospitalization, Other)
  Sender: FDA-Public Use
  Company Number: US-GLAXOSMITHKLINE-A1085328A

PATIENT
  Sex: Female

DRUGS (18)
  1. ADVAIR HFA [Suspect]
     Active Substance: FLUTICASONE PROPIONATE\SALMETEROL XINAFOATE
     Indication: CHRONIC OBSTRUCTIVE PULMONARY DISEASE
  2. CLONAZEPAM. [Concomitant]
     Active Substance: CLONAZEPAM
  3. ADVAIR HFA [Suspect]
     Active Substance: FLUTICASONE PROPIONATE\SALMETEROL XINAFOATE
     Indication: ASTHMA
  4. PHENOBARBITAL. [Concomitant]
     Active Substance: PHENOBARBITAL
  5. SYNTHROID [Concomitant]
     Active Substance: LEVOTHYROXINE SODIUM
  6. PRILOSEC [Concomitant]
     Active Substance: OMEPRAZOLE MAGNESIUM
  7. DILTIAZEM [Concomitant]
     Active Substance: DILTIAZEM
  8. VENTOLIN [Concomitant]
     Active Substance: ALBUTEROL SULFATE
  9. URSODIOL. [Concomitant]
     Active Substance: URSODIOL
  10. CELEXA [Concomitant]
     Active Substance: CITALOPRAM HYDROBROMIDE
  11. ADVAIR HFA [Suspect]
     Active Substance: FLUTICASONE PROPIONATE\SALMETEROL XINAFOATE
     Indication: INTERSTITIAL LUNG DISEASE
     Dosage: 250/50 MCG. 1 PUFF TWICE A DAY.
     Dates: start: 1990
  12. ADVAIR HFA [Suspect]
     Active Substance: FLUTICASONE PROPIONATE\SALMETEROL XINAFOATE
     Indication: CHRONIC OBSTRUCTIVE PULMONARY DISEASE
     Dosage: UNK
  13. ADVAIR HFA [Suspect]
     Active Substance: FLUTICASONE PROPIONATE\SALMETEROL XINAFOATE
     Indication: INTERSTITIAL LUNG DISEASE
     Dosage: UNKNOWN
     Route: 065
  14. LEVOTHYROXINE. [Concomitant]
     Active Substance: LEVOTHYROXINE
  15. RESTASIS [Concomitant]
     Active Substance: CYCLOSPORINE
  16. ADVAIR HFA [Suspect]
     Active Substance: FLUTICASONE PROPIONATE\SALMETEROL XINAFOATE
     Indication: ASTHMA
     Dosage: 250MCG
     Dates: start: 2000
  17. IRON [Concomitant]
     Active Substance: IRON
  18. UNSPECIFIED MEDICATION [Concomitant]
     Active Substance: UNSPECIFIED INGREDIENT
     Indication: LACRIMAL DISORDER

REACTIONS (16)
  - Hospitalisation [Unknown]
  - Haematochezia [Not Recovered/Not Resolved]
  - Immunodeficiency [Not Recovered/Not Resolved]
  - Gastrooesophageal reflux disease [Unknown]
  - Suture insertion [Unknown]
  - Ill-defined disorder [Not Recovered/Not Resolved]
  - Diverticulitis [Not Recovered/Not Resolved]
  - Haemorrhoids [Not Recovered/Not Resolved]
  - Diarrhoea [Recovered/Resolved]
  - Haemorrhage [Unknown]
  - Haemorrhoidal haemorrhage [Unknown]
  - Laceration [Unknown]
  - Staphylococcal infection [Unknown]
  - Dehydration [Recovered/Resolved]
  - Fall [Unknown]
  - Lacrimal disorder [Unknown]

NARRATIVE: CASE EVENT DATE: 2000
